FAERS Safety Report 12680106 (Version 1)
Quarter: 2016Q3

REPORT INFORMATION
  Report Type: Report from Study
  Country: JP (occurrence: JP)
  Receive Date: 20160824
  Receipt Date: 20160824
  Transmission Date: 20161109
  Serious: Yes (Death, Other)
  Sender: FDA-Public Use
  Company Number: JP-EISAI MEDICAL RESEARCH-EC-2016-019653

PATIENT
  Age: 55 Year
  Sex: Female
  Weight: 46 kg

DRUGS (6)
  1. LASIX [Concomitant]
     Active Substance: FUROSEMIDE
  2. HALAVEN [Suspect]
     Active Substance: ERIBULIN MESYLATE
     Indication: BREAST CANCER
     Route: 041
     Dates: start: 20150814, end: 20150911
  3. WHITE PETROLATUM [Concomitant]
     Active Substance: PETROLATUM
  4. TARIVID [Concomitant]
     Active Substance: OFLOXACIN
  5. LEVOFLOXACIN HEMIHYDRATE [Concomitant]
     Active Substance: LEVOFLOXACIN
  6. ALDACTONE A [Concomitant]
     Active Substance: SPIRONOLACTONE

REACTIONS (2)
  - Neutropenia [Recovered/Resolved]
  - Malignant neoplasm progression [Fatal]

NARRATIVE: CASE EVENT DATE: 20150820
